FAERS Safety Report 23486926 (Version 1)
Quarter: 2024Q1

REPORT INFORMATION
  Report Type: Spontaneous
  Country: US (occurrence: None)
  Receive Date: 20240205
  Receipt Date: 20240205
  Transmission Date: 20240409
  Serious: Yes (Hospitalization)
  Sender: FDA-Public Use
  Company Number: None

PATIENT
  Sex: Female

DRUGS (4)
  1. SILDENAFIL CITRATE [Suspect]
     Active Substance: SILDENAFIL CITRATE
     Indication: Pulmonary arterial hypertension
     Dosage: FREQUENCY : TWICE A DAY;?OTHER ROUTE : J-TUBE ;?
     Route: 050
     Dates: start: 202306
  2. TOBRAMYCIN [Concomitant]
  3. AMOXICILLIN [Concomitant]
     Active Substance: AMOXICILLIN
  4. TRACLEER [Concomitant]
     Active Substance: BOSENTAN

REACTIONS (3)
  - Seizure [None]
  - Respiratory distress [None]
  - Pneumonia [None]
